FAERS Safety Report 15960801 (Version 1)
Quarter: 2019Q1

REPORT INFORMATION
  Report Type: Spontaneous
  Country: US (occurrence: US)
  Receive Date: 20190122
  Receipt Date: 20190122
  Transmission Date: 20190417
  Serious: No
  Sender: FDA-Public Use
  Company Number: None

PATIENT
  Age: 63 Year
  Sex: Male

DRUGS (1)
  1. COSENTYX [Suspect]
     Active Substance: SECUKINUMAB
     Indication: PSORIASIS
     Dates: start: 20181010

REACTIONS (3)
  - Swollen tongue [None]
  - Nausea [None]
  - Pharyngeal oedema [None]

NARRATIVE: CASE EVENT DATE: 20190112
